FAERS Safety Report 6932290-5 (Version None)
Quarter: 2010Q3

REPORT INFORMATION
  Report Type: 
  Country: None (occurrence: None)
  Receive Date: 20100819
  Receipt Date: 20080625
  Transmission Date: 20110219
  Serious: Yes (Death)
  Sender: FDA-Public Use
  Company Number: US-ROCHE-721114

PATIENT
  Sex: Female

DRUGS (4)
  1. BEVACIZUMAB [Suspect]
     Indication: NON-SMALL CELL LUNG CANCER
     Dosage: 690 MG, Q3W
     Route: 042
     Dates: start: 20080107, end: 20080107
  2. BEVACIZUMAB [Suspect]
     Dosage: 690 MG, Q3W
     Route: 042
     Dates: start: 20080107, end: 20080107
  3. TAXOL [Suspect]
     Indication: NON-SMALL CELL LUNG CANCER
     Dosage: 285 MG, UNK
     Route: 042
     Dates: start: 20080107, end: 20080107
  4. CARBOPLATIN [Suspect]
     Indication: NON-SMALL CELL LUNG CANCER
     Dosage: 350 MG, UNK
     Route: 042
     Dates: start: 20080107, end: 20080107

REACTIONS (1)
  - DEATH [None]
